FAERS Safety Report 15552085 (Version 3)
Quarter: 2019Q1

REPORT INFORMATION
  Report Type: Spontaneous
  Country: US (occurrence: US)
  Receive Date: 20181025
  Receipt Date: 20190129
  Transmission Date: 20190417
  Serious: No
  Sender: FDA-Public Use
  Company Number: US-PFIZER INC-2018433638

PATIENT
  Age: 70 Year
  Sex: Female
  Weight: 52.15 kg

DRUGS (2)
  1. IBRANCE [Suspect]
     Active Substance: PALBOCICLIB
     Indication: BREAST CANCER METASTATIC
     Dosage: 100 MG, CYCLIC (3 WEEKS ON AND 1 WEEK OFF)
     Route: 048
     Dates: start: 201803, end: 20190107
  2. LETROZOLE. [Concomitant]
     Active Substance: LETROZOLE
     Dosage: UNK
     Dates: start: 2017

REACTIONS (8)
  - Back pain [Recovering/Resolving]
  - Pruritus [Unknown]
  - Arthralgia [Recovering/Resolving]
  - Neoplasm progression [Not Recovered/Not Resolved]
  - Capillary fragility [Unknown]
  - Insomnia [Recovering/Resolving]
  - Tumour marker increased [Unknown]
  - Constipation [Unknown]

NARRATIVE: CASE EVENT DATE: 2018
